FAERS Safety Report 24266896 (Version 1)
Quarter: 2024Q3

REPORT INFORMATION
  Report Type: Spontaneous
  Country: US (occurrence: US)
  Receive Date: 20240830
  Receipt Date: 20240830
  Transmission Date: 20241017
  Serious: No
  Sender: ROCHE
  Company Number: US-ROCHE-10000063818

PATIENT
  Age: 69 Year
  Sex: Female

DRUGS (3)
  1. AVASTIN [Suspect]
     Active Substance: BEVACIZUMAB
     Indication: Endometrial cancer
     Route: 065
  2. LENVIMA [Concomitant]
     Active Substance: LENVATINIB
     Route: 048
  3. ELIQUIS [Concomitant]
     Active Substance: APIXABAN

REACTIONS (2)
  - Hypoaesthesia [Unknown]
  - Thrombosis [Unknown]
